FAERS Safety Report 7952504-2 (Version None)
Quarter: 2011Q4

REPORT INFORMATION
  Report Type: 
  Country: None (occurrence: None)
  Receive Date: 20111201
  Receipt Date: 20111122
  Transmission Date: 20120403
  Serious: Yes (Death)
  Sender: FDA-Public Use
  Company Number: AT-PFIZER INC-2011286299

PATIENT
  Age: 56 Year
  Sex: Male
  Weight: 69 kg

DRUGS (11)
  1. METOCLOPRAMIDE HYDROCHLORIDE [Concomitant]
     Dosage: 25 GTT, 3X/DAY
     Route: 048
     Dates: start: 20111005
  2. AMITRIPTYLINE HCL [Concomitant]
     Dosage: 25 MG, 1X/DAY
     Route: 048
     Dates: start: 20110921
  3. ENALAPRIL [Concomitant]
     Dosage: 5 MG, 1X/DAY
     Route: 048
     Dates: start: 20111005
  4. AVASTIN [Suspect]
     Indication: COLORECTAL CANCER METASTATIC
     Dosage: 5 MG/KG, EVERY 2 WEEKS
     Route: 042
     Dates: start: 20111102
  5. PANTOPRAZOLE [Concomitant]
     Dosage: 40 MG, 1X/DAY
     Route: 048
     Dates: start: 20110921
  6. FLUOROURACIL [Suspect]
     Indication: COLORECTAL CANCER METASTATIC
     Dosage: 2800 MG/M2, EVERY 2 WEEKS
     Route: 042
     Dates: start: 20110921, end: 20111019
  7. SUCRALFATE [Concomitant]
     Dosage: 1G/5 ML, TWICE DAILY
     Route: 048
     Dates: start: 20111005
  8. IRINOTECAN HCL [Suspect]
     Indication: COLORECTAL CANCER METASTATIC
     Dosage: 180 MG/M2, EVERY 2 WEEKS
     Route: 042
     Dates: start: 20110921, end: 20111019
  9. LEUCOVORIN CALCIUM [Suspect]
     Indication: COLORECTAL CANCER METASTATIC
     Dosage: 400 MG/M2, EVERY 2 WEEKS
     Route: 042
     Dates: start: 20110921, end: 20111019
  10. DURAGESIC-100 [Concomitant]
     Dosage: 50 UG, EVERY 3 DAYS
     Route: 062
     Dates: start: 20110907
  11. XEFO [Concomitant]
     Dosage: 8 MG, 2X/DAY
     Route: 048
     Dates: start: 20110921

REACTIONS (1)
  - DEATH [None]
